FAERS Safety Report 8173744-6 (Version None)
Quarter: 2012Q1

REPORT INFORMATION
  Report Type: 
  Country: None (occurrence: None)
  Receive Date: 20120229
  Receipt Date: 20120216
  Transmission Date: 20120608
  Serious: Yes (Hospitalization, Other)
  Sender: FDA-Public Use
  Company Number: TR-BAYER-2012-016286

PATIENT
  Age: 58 Year
  Sex: Male

DRUGS (4)
  1. ACE INHIBITOR NOS [Suspect]
  2. ASPIRIN [Suspect]
  3. STATIN [Suspect]
  4. CLOPIDOGREL [Suspect]

REACTIONS (3)
  - ACUTE MYOCARDIAL INFARCTION [None]
  - THROMBOSIS IN DEVICE [None]
  - CHEST PAIN [None]
